FAERS Safety Report 10233953 (Version 1)
Quarter: 2014Q2

REPORT INFORMATION
  Report Type: Spontaneous
  Country: BR (occurrence: BR)
  Receive Date: 20140612
  Receipt Date: 20140612
  Transmission Date: 20141212
  Serious: Yes (Hospitalization)
  Sender: FDA-Public Use
  Company Number: BR-ELI_LILLY_AND_COMPANY-BR201406003261

PATIENT
  Age: 78 Year
  Sex: Male
  Weight: 72 kg

DRUGS (6)
  1. EFFIENT [Suspect]
     Indication: ANTIPLATELET THERAPY
     Dosage: 10 MG, QD
     Route: 048
     Dates: start: 201402, end: 20140427
  2. METFORMIN [Concomitant]
     Dosage: UNK
     Route: 065
  3. ACETYLSALICYLIC ACID [Concomitant]
     Dosage: UNK
     Route: 065
  4. ATENOLOL [Concomitant]
     Dosage: UNK
     Route: 065
  5. ISOSORBIDE [Concomitant]
     Dosage: UNK
     Route: 065
  6. HYDROCHLOROTHIAZIDE [Concomitant]
     Dosage: UNK
     Route: 065

REACTIONS (1)
  - Venous occlusion [Recovering/Resolving]
